FAERS Safety Report 9853403 (Version 2)
Quarter: 2014Q1

REPORT INFORMATION
  Report Type: Spontaneous
  Country: CN (occurrence: CN)
  Receive Date: 20140129
  Receipt Date: 20140206
  Transmission Date: 20141002
  Serious: Yes (Other)
  Sender: FDA-Public Use
  Company Number: CN-ASTRAZENECA-2014SE06061

PATIENT
  Age: 78 Year
  Sex: Male

DRUGS (6)
  1. METOPROLOL TARTRATE [Suspect]
     Route: 048
  2. MEROPENEM (NON AZ) [Suspect]
     Indication: LUNG INFECTION
     Route: 041
  3. MOXIFLOXACIN HYDROCHLORIDE [Suspect]
     Indication: LUNG INFECTION
     Route: 041
  4. NIFEDIPINE [Suspect]
     Route: 048
  5. PREDNISOLONE [Suspect]
     Route: 048
  6. TAMSULOSINGHYDROCHLORIDE RELEASE CAPSULE [Suspect]
     Route: 048

REACTIONS (4)
  - Dermatitis bullous [Recovered/Resolved]
  - Pyrexia [Unknown]
  - Procalcitonin increased [Unknown]
  - Blood creatinine increased [Unknown]
